FAERS Safety Report 8536089-8 (Version None)
Quarter: 2012Q3

REPORT INFORMATION
  Report Type: 
  Country: None (occurrence: None)
  Receive Date: 20120725
  Receipt Date: 20120717
  Transmission Date: 20120928
  Serious: Yes (Other)
  Sender: FDA-Public Use
  Company Number: US-BAYER-2012-053842

PATIENT
  Age: 70 Year
  Sex: Female
  Weight: 60 kg

DRUGS (8)
  1. AMBIEN [Concomitant]
     Dosage: 10 MG, HS
  2. NEXAVAR [Suspect]
     Indication: METASTASES TO LUNG
  3. CALCITRIOL [Concomitant]
     Dosage: 0.25 MCG BID
  4. PREVACID [Concomitant]
     Dosage: 30 MG, UNK
  5. LORTAB [Concomitant]
  6. NEXAVAR [Suspect]
     Indication: THYROID CANCER
     Dosage: 200 MG, BID
     Dates: start: 20111001
  7. SYNTHROID [Concomitant]
     Dosage: 88 MCG, UNK
  8. PROCHLORPERAZINE [Concomitant]
     Dosage: UNK MG, UNK

REACTIONS (7)
  - PULMONARY VENOUS THROMBOSIS [None]
  - PORTAL VEIN THROMBOSIS [None]
  - DYSPNOEA [None]
  - COUGH [None]
  - INJECTION SITE MASS [None]
  - PULMONARY EMBOLISM [None]
  - NEOPLASM PROGRESSION [None]
